FAERS Safety Report 7805470-4 (Version None)
Quarter: 2011Q4

REPORT INFORMATION
  Report Type: 
  Country: None (occurrence: None)
  Receive Date: 20111010
  Receipt Date: 20110927
  Transmission Date: 20120403
  Serious: Yes (Other)
  Sender: FDA-Public Use
  Company Number: PHEH2011US05499

PATIENT
  Age: 47 Year
  Sex: Female

DRUGS (6)
  1. ASTELIN [Concomitant]
     Dosage: 137 UG, QD
     Dates: start: 20060101
  2. NEXIUM [Concomitant]
     Indication: EOSINOPHILIC OESOPHAGITIS
     Dosage: 40 MG, QD
     Dates: start: 20110601
  3. VITAMIN D [Concomitant]
     Indication: VITAMIN D DEFICIENCY
     Dosage: 2000 U, QD
     Dates: start: 20100101
  4. EPIPEN [Concomitant]
     Indication: HYPERSENSITIVITY
     Dosage: UNK UKN, PRN
     Dates: start: 20090101
  5. NASONEX [Concomitant]
     Indication: HYPERSENSITIVITY
     Dosage: UNK UKN, UNK
     Dates: start: 20060101
  6. GILENYA [Suspect]
     Indication: MULTIPLE SCLEROSIS
     Dosage: 0.5 MG, QD
     Route: 048
     Dates: start: 20101208

REACTIONS (2)
  - BREAST CANCER STAGE I [None]
  - BREAST CYST [None]
